FAERS Safety Report 20701670 (Version 1)
Quarter: 2022Q2

REPORT INFORMATION
  Report Type: Spontaneous
  Country: US (occurrence: None)
  Receive Date: 20220411
  Receipt Date: 20220411
  Transmission Date: 20220720
  Serious: Yes (Life-Threatening, Hospitalization, Disabling)
  Sender: FDA-Public Use
  Company Number: None

PATIENT
  Age: 60 Year
  Sex: Female
  Weight: 89.1 kg

DRUGS (9)
  1. ZANTAC [Suspect]
     Active Substance: RANITIDINE HYDROCHLORIDE
     Indication: Dyspepsia
     Route: 048
  2. SOTALOL [Concomitant]
     Active Substance: SOTALOL
  3. PROMETHAZINE [Concomitant]
  4. XARELTO [Concomitant]
     Active Substance: RIVAROXABAN
  5. LOSARTAN [Concomitant]
     Active Substance: LOSARTAN
  6. IMITREX [Concomitant]
     Active Substance: SUMATRIPTAN SUCCINATE
  7. LASIX [Concomitant]
     Active Substance: FUROSEMIDE
  8. POTASSIUM [Concomitant]
     Active Substance: POTASSIUM
  9. VITAMIN D NOS [Concomitant]
     Active Substance: VITAMIN D NOS

REACTIONS (3)
  - Lung neoplasm malignant [None]
  - Recalled product administered [None]
  - Product impurity [None]

NARRATIVE: CASE EVENT DATE: 20190401
